FAERS Safety Report 7983998-4 (Version None)
Quarter: 2011Q4

REPORT INFORMATION
  Report Type: 
  Country: None (occurrence: None)
  Receive Date: 20111214
  Receipt Date: 20111130
  Transmission Date: 20120403
  Serious: Yes (Death, Life-Threatening, Hospitalization, Other)
  Sender: FDA-Public Use
  Company Number: 010975

PATIENT
  Age: 25 Year
  Sex: Male

DRUGS (38)
  1. ATIVAN [Concomitant]
  2. NICORETTE [Concomitant]
  3. OXYCODONE HCL [Concomitant]
  4. MESNA [Concomitant]
  5. FAMOTIDINE [Concomitant]
  6. BENADRYL/ MAALOX LIDOCAINE [Concomitant]
  7. PROMETHAZINE [Concomitant]
  8. AMITRIPTYLINE HCL [Concomitant]
  9. DOCUSATE (DOCUSATE) [Concomitant]
  10. CIPROFLOXACIN HYDROCHLORIDE [Concomitant]
  11. AMBIEN [Concomitant]
  12. FENTANYL [Concomitant]
  13. HYDROXYZINE [Concomitant]
  14. MAGNESIUM SULFATE [Concomitant]
  15. ETOPOSIDE [Concomitant]
  16. CYCLOPHOSPHAMIDE [Concomitant]
  17. DEXAMETHASONE [Concomitant]
  18. NEXIUM [Concomitant]
  19. GI COCKTAIL [Concomitant]
  20. ACYCLOVIR [Concomitant]
  21. LOPERAMIDE [Concomitant]
  22. BUSULFAN [Suspect]
     Indication: STEM CELL TRANSPLANT
     Dosage: 0.8 MG/KG, DAILY DOSE, INTRAVENOUS 270 MG, DAILY DOSE, INTRAVENOUS
     Route: 042
     Dates: start: 20100809, end: 20100812
  23. BUSULFAN [Suspect]
     Indication: STEM CELL TRANSPLANT
     Dosage: 0.8 MG/KG, DAILY DOSE, INTRAVENOUS 270 MG, DAILY DOSE, INTRAVENOUS
     Route: 042
     Dates: start: 20100804, end: 20100804
  24. POTASSIUM CHLORIDE [Concomitant]
  25. FLUCONAZOLE [Concomitant]
  26. HYDROCORTONE [Concomitant]
  27. FLEET MINERAL OIL ENEMA (PARAFFIN, LIQUID) [Concomitant]
  28. MAGNESIUM CITRATE (MAGNESIUM CITRATE) [Concomitant]
  29. SODIUM PHOSPHATE (32 P) (SODIUM PHOSPHATE (32 P)) [Concomitant]
  30. SIMETHICONE (SIMETICONE) [Concomitant]
  31. ONDANSETRON [Concomitant]
  32. DIPHENHYDRAMINE HCL [Concomitant]
  33. ACETAMINOPHEN [Concomitant]
  34. CAMPHOR (CAMPHOR) [Concomitant]
  35. CEFEPIME [Concomitant]
  36. MORPHINE [Concomitant]
  37. VANCOMYCIN [Concomitant]
  38. METOCLOPRAMIDE [Concomitant]

REACTIONS (19)
  - KLEBSIELLA BACTERAEMIA [None]
  - HAEMOPHILUS INFECTION [None]
  - ABDOMINAL COMPARTMENT SYNDROME [None]
  - RESPIRATORY DISTRESS [None]
  - RESPIRATORY FAILURE [None]
  - MULTI-ORGAN FAILURE [None]
  - ACUTE RESPIRATORY DISTRESS SYNDROME [None]
  - HAEMODYNAMIC INSTABILITY [None]
  - MENTAL STATUS CHANGES [None]
  - ATRIAL FLUTTER [None]
  - POST PROCEDURAL COMPLICATION [None]
  - BACTERIAL INFECTION [None]
  - CLOSTRIDIUM DIFFICILE COLITIS [None]
  - RENAL FAILURE [None]
  - LACTIC ACIDOSIS [None]
  - SUPRAVENTRICULAR TACHYCARDIA [None]
  - GASTRIC ULCER [None]
  - HEPATIC FAILURE [None]
  - SEPTIC SHOCK [None]
